FAERS Safety Report 12256827 (Version 1)
Quarter: 2016Q2

REPORT INFORMATION
  Report Type: Spontaneous
  Country: US (occurrence: None)
  Receive Date: 20160411
  Receipt Date: 20160411
  Transmission Date: 20160815
  Serious: Yes (Disabling)
  Sender: FDA-Public Use
  Company Number: None

PATIENT
  Age: 49 Year
  Sex: Female
  Weight: 81.19 kg

DRUGS (8)
  1. EFFEXXOR [Concomitant]
  2. LEVOFLOXACIN, 500 MG ZYDUS [Suspect]
     Active Substance: LEVOFLOXACIN
     Indication: BACTERIAL INFECTION
     Dosage: 10 TABLETS ONCE A DAY
     Route: 048
     Dates: start: 20160330, end: 20160409
  3. PAIN RELIEVER [Concomitant]
     Active Substance: ACETAMINOPHEN\ASPIRIN\SALICYLAMIDE
  4. GOODYS [Concomitant]
     Active Substance: ACETAMINOPHEN\ASPIRIN\CAFFEINE
  5. VITAMIN B12 [Concomitant]
     Active Substance: CYANOCOBALAMIN
  6. IRON [Concomitant]
     Active Substance: IRON
  7. LEVOFLOXACIN, 500 MG ZYDUS [Suspect]
     Active Substance: LEVOFLOXACIN
     Indication: SINUSITIS
     Dosage: 10 TABLETS ONCE A DAY
     Route: 048
     Dates: start: 20160330, end: 20160409
  8. LISINOPRIL. [Concomitant]
     Active Substance: LISINOPRIL

REACTIONS (5)
  - Drug ineffective [None]
  - Blindness [None]
  - Pain [None]
  - Quality of life decreased [None]
  - Pain in extremity [None]

NARRATIVE: CASE EVENT DATE: 20160406
